FAERS Safety Report 4830326-9 (Version None)
Quarter: 2005Q4

REPORT INFORMATION
  Report Type: 
  Country: None (occurrence: None)
  Receive Date: 20051114
  Receipt Date: 20051031
  Transmission Date: 20060501
  Serious: Yes (Hospitalization, Other)
  Sender: FDA-Public Use
  Company Number: USA0511112595

PATIENT

DRUGS (3)
  1. CYMBALTA [Suspect]
  2. REMERON [Concomitant]
  3. RISPERDAL [Concomitant]

REACTIONS (2)
  - BLOOD SODIUM DECREASED [None]
  - HIP FRACTURE [None]
